FAERS Safety Report 11137594 (Version 1)
Quarter: 2015Q2

REPORT INFORMATION
  Report Type: Spontaneous
  Country: IT (occurrence: IT)
  Receive Date: 20150526
  Receipt Date: 20150526
  Transmission Date: 20150821
  Serious: Yes (Other)
  Sender: FDA-Public Use
  Company Number: PHHY2015IT059739

PATIENT
  Age: 12 Year
  Sex: Male

DRUGS (8)
  1. VINCRISTINE [Suspect]
     Active Substance: VINCRISTINE
     Indication: PRIMITIVE NEUROECTODERMAL TUMOUR
     Route: 065
  2. CYCLOPHOSPHAMIDE. [Suspect]
     Active Substance: CYCLOPHOSPHAMIDE
     Indication: PRIMITIVE NEUROECTODERMAL TUMOUR
     Route: 065
  3. CARBOPLATIN. [Suspect]
     Active Substance: CARBOPLATIN
     Indication: PRIMITIVE NEUROECTODERMAL TUMOUR
     Route: 065
  4. VINCRISTINE [Concomitant]
     Active Substance: VINCRISTINE
     Indication: PRIMITIVE NEUROECTODERMAL TUMOUR
     Route: 065
  5. LOMUSTINE. [Suspect]
     Active Substance: LOMUSTINE
     Indication: PRIMITIVE NEUROECTODERMAL TUMOUR
     Route: 065
  6. METHOTREXATE [Suspect]
     Active Substance: METHOTREXATE
     Indication: PRIMITIVE NEUROECTODERMAL TUMOUR
     Route: 065
  7. ETOPOSIDE. [Suspect]
     Active Substance: ETOPOSIDE
     Indication: PRIMITIVE NEUROECTODERMAL TUMOUR
     Route: 065
  8. THIOTEPA. [Concomitant]
     Active Substance: THIOTEPA
     Indication: PRIMITIVE NEUROECTODERMAL TUMOUR
     Route: 065

REACTIONS (9)
  - Mental status changes [Recovering/Resolving]
  - Tremor [Recovering/Resolving]
  - Dysphagia [Recovering/Resolving]
  - Altered state of consciousness [Recovering/Resolving]
  - Mydriasis [Recovering/Resolving]
  - Decreased appetite [Recovering/Resolving]
  - Wernicke^s encephalopathy [Recovering/Resolving]
  - Hallucination [Recovering/Resolving]
  - Aphasia [Recovering/Resolving]
